FAERS Safety Report 8425626-X (Version None)
Quarter: 2012Q2

REPORT INFORMATION
  Report Type: 
  Country: None (occurrence: None)
  Receive Date: 20120611
  Receipt Date: 20120605
  Transmission Date: 20120825
  Serious: Yes (Other)
  Sender: FDA-Public Use
  Company Number: PHEH2011US012030

PATIENT
  Sex: Male
  Weight: 55 kg

DRUGS (8)
  1. EXJADE [Suspect]
     Dosage: 18 MG/KG, QD (1000 MG, QD)
     Route: 048
  2. HYDROXYUREA [Concomitant]
  3. EXJADE [Suspect]
     Indication: SICKLE CELL ANAEMIA
     Dosage: 18 MG/KG, DAILY (1000 MG, DAILY)
     Route: 048
  4. EXJADE [Suspect]
     Dosage: 45 MG/KG, DAILY (2500 MG, DAILY)
  5. EXJADE [Suspect]
     Dosage: 500 MG, QOD
     Route: 048
  6. EXJADE [Suspect]
     Dosage: 36 MG/KG, QD (2000 MG, QD)
     Route: 048
  7. FOLIC ACID [Concomitant]
     Dosage: 1 MG, QD
     Route: 048
  8. EXJADE [Suspect]
     Dosage: 27 MG/KG, DAILY (1500 MG, DAILY)
     Route: 065

REACTIONS (2)
  - RENAL DISORDER [None]
  - BLOOD CREATININE INCREASED [None]
